FAERS Safety Report 9217254 (Version 3)
Quarter: 2013Q2

REPORT INFORMATION
  Report Type: Report from Study
  Country: FR (occurrence: FR)
  Receive Date: 20130408
  Receipt Date: 20130429
  Transmission Date: 20140414
  Serious: Yes (Other)
  Sender: FDA-Public Use
  Company Number: PHHY2013FR032994

PATIENT
  Age: 26 Year
  Sex: Female
  Weight: 41 kg

DRUGS (6)
  1. ACZ885 [Suspect]
     Indication: AUTOINFLAMMATORY DISEASE
     Dosage: 150 MG, QMO
     Dates: start: 20120306
  2. ACZ885 [Suspect]
     Dosage: 150 MG, QMO
     Dates: start: 20120420
  3. PLAQUENIL [Concomitant]
     Indication: AUTOINFLAMMATORY DISEASE
     Dosage: 1 DF, QD
     Dates: start: 20110816
  4. PLAQUENIL [Concomitant]
     Indication: BONE DISORDER
  5. SOLUMEDROL [Concomitant]
     Indication: AUTOINFLAMMATORY DISEASE
     Dosage: 250 MG, QD
     Dates: start: 200812
  6. CORTANCYL [Concomitant]
     Indication: AUTOINFLAMMATORY DISEASE
     Dosage: 15 MG, QD
     Dates: start: 201111

REACTIONS (5)
  - Hepatocellular injury [Recovered/Resolved]
  - Cholestasis [Recovered/Resolved]
  - Hepatic function abnormal [Recovered/Resolved]
  - Cholecystitis chronic [Unknown]
  - Biliary dilatation [Unknown]
